FAERS Safety Report 25500869 (Version 1)
Quarter: 2025Q3

REPORT INFORMATION
  Report Type: Spontaneous
  Country: EU (occurrence: EU)
  Receive Date: 20250701
  Receipt Date: 20250701
  Transmission Date: 20251021
  Serious: Yes (Life-Threatening, Hospitalization, Other)
  Sender: PFIZER
  Company Number: EU-MYLANLABS-2025M1050591

PATIENT
  Age: 70 Year
  Sex: Male

DRUGS (2)
  1. BOSUTINIB [Suspect]
     Active Substance: BOSUTINIB
  2. NILOTINIB [Suspect]
     Active Substance: NILOTINIB
     Indication: Chronic myeloid leukaemia
     Dates: start: 2018, end: 202301

REACTIONS (3)
  - Coronary artery disease [Recovered/Resolved]
  - Acute coronary syndrome [Recovered/Resolved]
  - Arteriosclerosis [Recovered/Resolved]
